FAERS Safety Report 9350862 (Version 1)
Quarter: 2013Q2

REPORT INFORMATION
  Report Type: Spontaneous
  Country: GB (occurrence: GB)
  Receive Date: 20130617
  Receipt Date: 20130617
  Transmission Date: 20140414
  Serious: Yes (Hospitalization)
  Sender: FDA-Public Use
  Company Number: GB-TEVA-412131ISR

PATIENT
  Age: 3 Year
  Sex: Male
  Weight: 15.7 kg

DRUGS (13)
  1. VINCRISTINE [Suspect]
     Indication: NEOPLASM MALIGNANT
     Dosage: 2 MILLIGRAM DAILY;
     Route: 040
     Dates: start: 20130504
  2. DOXORUBICIN NOS [Suspect]
     Indication: NEOPLASM MALIGNANT
     Dosage: 2 MILLIGRAM DAILY;
     Route: 040
     Dates: start: 20130504
  3. ACTINOMYCIN D [Suspect]
     Indication: NEOPLASM MALIGNANT
     Dosage: 1 MILLIGRAM DAILY;
     Route: 040
     Dates: start: 20130504
  4. IFOSFAMIDE [Suspect]
     Indication: NEOPLASM MALIGNANT
     Dosage: 2 MILLIGRAM DAILY;
     Route: 041
     Dates: start: 20130504
  5. ONDANSETRON [Concomitant]
     Indication: PRODUCT USED FOR UNKNOWN INDICATION
     Dates: start: 20130504
  6. DEXAMETHASONE [Concomitant]
     Indication: PRODUCT USED FOR UNKNOWN INDICATION
     Dates: start: 20130504, end: 20130505
  7. LEVOMEPROMAZINE [Concomitant]
     Indication: PRODUCT USED FOR UNKNOWN INDICATION
     Dates: start: 20130504
  8. PARACETAMOL [Concomitant]
     Indication: PRODUCT USED FOR UNKNOWN INDICATION
     Dates: start: 20130506
  9. TAZOCIN [Concomitant]
     Indication: PRODUCT USED FOR UNKNOWN INDICATION
     Dates: start: 20130513
  10. MOVICOL [Concomitant]
     Indication: PRODUCT USED FOR UNKNOWN INDICATION
  11. ALL OTHER THERAPEUTIC PRODUCTS [Concomitant]
     Indication: PRODUCT USED FOR UNKNOWN INDICATION
  12. METOCLOPRAMIDE [Concomitant]
     Indication: PRODUCT USED FOR UNKNOWN INDICATION
     Dates: start: 20130504
  13. PANTOPRAZOLE [Concomitant]
     Indication: PRODUCT USED FOR UNKNOWN INDICATION
     Dates: start: 20130505

REACTIONS (3)
  - Pleural effusion [Unknown]
  - Hypophagia [Unknown]
  - Febrile neutropenia [Unknown]
